FAERS Safety Report 18614699 (Version 1)
Quarter: 2020Q4

REPORT INFORMATION
  Report Type: Spontaneous
  Country: US (occurrence: US)
  Receive Date: 20201214
  Receipt Date: 20201214
  Transmission Date: 20210114
  Serious: No
  Sender: FDA-Public Use
  Company Number: US-ABBVIE-19K-163-3208109-00

PATIENT
  Age: 68 Year
  Sex: Female

DRUGS (1)
  1. IMBRUVICA [Suspect]
     Active Substance: IBRUTINIB
     Indication: MARGINAL ZONE LYMPHOMA
     Route: 048
     Dates: start: 201910

REACTIONS (7)
  - Drug ineffective [Not Recovered/Not Resolved]
  - Rib fracture [Not Recovered/Not Resolved]
  - Rash [Unknown]
  - Productive cough [Not Recovered/Not Resolved]
  - Ear discomfort [Not Recovered/Not Resolved]
  - Diarrhoea [Unknown]
  - Contusion [Not Recovered/Not Resolved]

NARRATIVE: CASE EVENT DATE: 202002
